FAERS Safety Report 21146567 (Version 1)
Quarter: 2022Q3

REPORT INFORMATION
  Report Type: Spontaneous
  Country: US (occurrence: US)
  Receive Date: 20220729
  Receipt Date: 20220729
  Transmission Date: 20221027
  Serious: Yes (Other)
  Sender: FDA-Public Use
  Company Number: US-NOVARTISPH-NVSC2022US171116

PATIENT
  Age: 73 Year
  Sex: Female

DRUGS (1)
  1. METHYLPREDNISOLONE [Suspect]
     Active Substance: METHYLPREDNISOLONE
     Indication: Myelitis transverse
     Dosage: UNK
     Route: 065

REACTIONS (3)
  - Dural arteriovenous fistula [Unknown]
  - Condition aggravated [Unknown]
  - Product use in unapproved indication [Unknown]
